FAERS Safety Report 9921266 (Version 1)
Quarter: 2014Q1

REPORT INFORMATION
  Report Type: Report from Study
  Country: BR (occurrence: BR)
  Receive Date: 20140225
  Receipt Date: 20140225
  Transmission Date: 20141002
  Serious: Yes (Other)
  Sender: FDA-Public Use
  Company Number: BR-ASTRAZENECA-2014SE12432

PATIENT
  Age: 21124 Day
  Sex: Male

DRUGS (8)
  1. AZD6140 [Suspect]
     Indication: CORONARY ARTERY DISEASE
     Route: 048
     Dates: start: 20120731
  2. ENALAPRIL MALEATE [Concomitant]
     Indication: CORONARY ARTERY DISEASE
     Route: 048
  3. ENALAPRIL MALEATE [Concomitant]
     Indication: HYPERTENSION
     Route: 048
  4. ATENOLOL [Concomitant]
     Indication: CORONARY ARTERY DISEASE
     Route: 048
  5. ATENOLOL [Concomitant]
     Indication: HYPERTENSION
     Route: 048
  6. RANITIDINE HYDROCHLORIDE [Concomitant]
     Indication: GASTRITIS PROPHYLAXIS
     Route: 048
  7. ATORVASTATIN [Concomitant]
     Indication: CORONARY ARTERY DISEASE
     Route: 048
  8. ASA [Concomitant]
     Route: 048

REACTIONS (1)
  - Type 2 diabetes mellitus [Not Recovered/Not Resolved]
